FAERS Safety Report 6747510-X (Version None)
Quarter: 2010Q2

REPORT INFORMATION
  Report Type: 
  Country: None (occurrence: None)
  Receive Date: 20100528
  Receipt Date: 20100520
  Transmission Date: 20101027
  Serious: No
  Sender: FDA-Public Use
  Company Number: JP-MERCK-0912USA01658

PATIENT
  Age: 69 Year
  Sex: Female

DRUGS (5)
  1. FOSAMAX [Suspect]
     Route: 048
  2. ALFAROL [Concomitant]
     Route: 048
  3. MERISLON [Concomitant]
     Route: 048
  4. LENDORMIN [Concomitant]
     Route: 048
  5. CYANOCOBALAMIN [Concomitant]
     Route: 065

REACTIONS (1)
  - BONE FORMATION INCREASED [None]
